FAERS Safety Report 10172175 (Version 1)
Quarter: 2014Q2

REPORT INFORMATION
  Report Type: Report from Study
  Country: AR (occurrence: AR)
  Receive Date: 20140515
  Receipt Date: 20140515
  Transmission Date: 20141212
  Serious: Yes (Other)
  Sender: FDA-Public Use
  Company Number: PHHY2014AR057119

PATIENT
  Sex: Female

DRUGS (1)
  1. GILENYA [Suspect]
     Indication: MULTIPLE SCLEROSIS
     Dosage: 0.5 MG, QD
     Route: 048
     Dates: start: 201303

REACTIONS (7)
  - Fall [Recovering/Resolving]
  - Face injury [Unknown]
  - Facial pain [Recovering/Resolving]
  - Swelling [Unknown]
  - Haematoma [Recovering/Resolving]
  - Contusion [Unknown]
  - Dizziness [Not Recovered/Not Resolved]
